FAERS Safety Report 6106969-1 (Version None)
Quarter: 2009Q1

REPORT INFORMATION
  Report Type: 
  Country: None (occurrence: None)
  Receive Date: 20090306
  Receipt Date: 20090306
  Transmission Date: 20090719
  Serious: Yes (Death, Life-Threatening, Disabling)
  Sender: FDA-Public Use
  Company Number: None

PATIENT
  Sex: Male
  Weight: 58.9676 kg

DRUGS (2)
  1. LUPRON DEPOT [Suspect]
     Indication: PROSTATE CANCER
     Dosage: 7.5 MG MONTHLY BUTTOCK
     Dates: start: 19980101, end: 20000101
  2. CASODEX [Suspect]
     Indication: PROSTATE CANCER
     Dosage: 50 MG DAILY MOUTH
     Route: 048
     Dates: start: 19990101, end: 20000101

REACTIONS (5)
  - AMNESIA [None]
  - BREAST ENLARGEMENT [None]
  - DYSPNOEA [None]
  - EPISTAXIS [None]
  - HOT FLUSH [None]
